FAERS Safety Report 24593832 (Version 1)
Quarter: 2024Q4

REPORT INFORMATION
  Report Type: Spontaneous
  Country: CA (occurrence: CA)
  Receive Date: 20241108
  Receipt Date: 20241108
  Transmission Date: 20250115
  Serious: Yes (Other)
  Sender: PFIZER
  Company Number: CA-PFIZER INC-202400296673

PATIENT
  Age: 82 Year
  Sex: Male

DRUGS (1)
  1. BEVACIZUMAB [Suspect]
     Active Substance: BEVACIZUMAB
     Indication: Age-related macular degeneration
     Dosage: UNK
     Route: 050

REACTIONS (3)
  - Blindness [Unknown]
  - Hypoacusis [Unknown]
  - Off label use [Unknown]
